FAERS Safety Report 5578769-2 (Version None)
Quarter: 2007Q4

REPORT INFORMATION
  Report Type: 
  Country: None (occurrence: None)
  Receive Date: 20071227
  Receipt Date: 20071227
  Transmission Date: 20080405
  Serious: Yes (Hospitalization)
  Sender: FDA-Public Use
  Company Number: None

PATIENT
  Age: 11 Year
  Sex: Male
  Weight: 58.9676 kg

DRUGS (1)
  1. AUGMENTIN '250' [Suspect]
     Indication: INFECTION
     Dosage: 500 MG  3 TIMES DAILY  PO
     Route: 048
     Dates: start: 20071210, end: 20071215

REACTIONS (4)
  - CONVULSION [None]
  - LOSS OF CONSCIOUSNESS [None]
  - PAIN [None]
  - URTICARIA [None]
